FAERS Safety Report 8296151 (Version 2)
Quarter: 2012Q4

REPORT INFORMATION
  Report Type: 
  Country: JP (occurrence: US)
  Receive Date: 20111216
  Receipt Date: 20121218
  Transmission Date: 20130627
  Serious: No
  Sender: FDA-Public Use
  Company Number: US-BRISTOL-MYERS SQUIBB COMPANY-15614969

PATIENT
  Age: 38 Year
  Sex: Female
  Weight: 81.63 kg

DRUGS (16)
  1. ABILIFY [Suspect]
     Indication: BIPOLAR DISORDER
     Dosage: Dose increased from 2mg to 5mg them 30mg
     Dates: start: 2009
  2. HALDOL [Suspect]
     Indication: BIPOLAR DISORDER
  3. PERCOCET [Concomitant]
  4. VALIUM [Concomitant]
     Indication: MUSCLE SPASMS
     Dates: start: 2011
  5. NEURONTIN [Concomitant]
     Indication: NEURALGIA
  6. DEPAKOTE [Concomitant]
     Indication: BIPOLAR DISORDER
  7. LITHIUM [Concomitant]
     Indication: BIPOLAR DISORDER
  8. TRAZODONE HCL [Concomitant]
  9. PIROXICAM [Concomitant]
  10. BACLOFEN [Concomitant]
  11. HYDROCODONE [Concomitant]
  12. VITAMINS [Concomitant]
  13. TRIAMTERENE + HCTZ [Concomitant]
  14. WELLBUTRIN [Concomitant]
     Indication: ANXIETY
  15. WELLBUTRIN [Concomitant]
     Indication: DEPRESSION
  16. XANAX [Concomitant]
     Indication: ANXIETY

REACTIONS (3)
  - Hallucination [Unknown]
  - Confusional state [Unknown]
  - Vision blurred [Unknown]
